FAERS Safety Report 8973360 (Version 3)
Quarter: 2013Q3

REPORT INFORMATION
  Report Type: Spontaneous
  Country: US (occurrence: US)
  Receive Date: 20121219
  Receipt Date: 20130725
  Transmission Date: 20140515
  Serious: Yes (Other)
  Sender: FDA-Public Use
  Company Number: US-PAR PHARMACEUTICAL, INC-2012SCPR004783

PATIENT
  Sex: 0

DRUGS (3)
  1. METOCLOPRAMIDE [Suspect]
     Indication: OESOPHAGEAL MOTILITY DISORDER
     Dosage: 10 MG, QID
     Route: 065
     Dates: start: 2004, end: 200910
  2. METOCLOPRAMIDE [Suspect]
     Dosage: 10 MG, QID AND HS
     Route: 065
     Dates: end: 200910
  3. PHENERGAN /00033001/ [Suspect]
     Indication: PRODUCT USED FOR UNKNOWN INDICATION
     Dosage: UNK, UNKNOWN
     Route: 065

REACTIONS (3)
  - Progressive supranuclear palsy [Unknown]
  - Multiple system atrophy [Unknown]
  - Parkinson^s disease [Unknown]
